FAERS Safety Report 25785332 (Version 1)
Quarter: 2025Q3

REPORT INFORMATION
  Report Type: Spontaneous
  Country: BR (occurrence: BR)
  Receive Date: 20250910
  Receipt Date: 20250910
  Transmission Date: 20251021
  Serious: Yes (Other)
  Sender: ROCHE
  Company Number: BR-ROCHE-10000377358

PATIENT
  Age: 44 Year
  Sex: Female

DRUGS (5)
  1. HERCEPTIN [Suspect]
     Active Substance: TRASTUZUMAB
     Indication: HER2 positive breast cancer
     Route: 065
     Dates: start: 20211227, end: 20220412
  2. HERCEPTIN [Suspect]
     Active Substance: TRASTUZUMAB
     Route: 065
     Dates: start: 202206, end: 20230713
  3. PERJETA [Suspect]
     Active Substance: PERTUZUMAB
     Indication: HER2 positive breast cancer
     Route: 065
     Dates: start: 20211227, end: 20220412
  4. DOCETAXEL [Suspect]
     Active Substance: DOCETAXEL
     Indication: HER2 positive breast cancer
     Route: 065
     Dates: start: 20211227, end: 20220412
  5. CYCLOPHOSPHAMIDE [Suspect]
     Active Substance: CYCLOPHOSPHAMIDE
     Indication: HER2 positive breast cancer
     Route: 065
     Dates: start: 20211227, end: 20220412

REACTIONS (3)
  - Metastases to central nervous system [Unknown]
  - Breast cancer recurrent [Unknown]
  - Metastases to meninges [Unknown]

NARRATIVE: CASE EVENT DATE: 20240801
